FAERS Safety Report 12108330 (Version 1)
Quarter: 2016Q1

REPORT INFORMATION
  Report Type: Spontaneous
  Country: GB (occurrence: GB)
  Receive Date: 20160224
  Receipt Date: 20160224
  Transmission Date: 20160526
  Serious: Yes (Other)
  Sender: FDA-Public Use
  Company Number: GB-ROCHE-1714438

PATIENT
  Age: 54 Year
  Sex: Male

DRUGS (2)
  1. RANIBIZUMAB [Suspect]
     Active Substance: RANIBIZUMAB
     Indication: HAEMANGIOMA OF RETINA
     Route: 050
  2. VISUDYNE [Suspect]
     Active Substance: VERTEPORFIN
     Indication: HAEMANGIOMA OF RETINA
     Route: 042

REACTIONS (3)
  - Product use issue [Unknown]
  - Neoplasm [Unknown]
  - Therapeutic response decreased [Unknown]
